FAERS Safety Report 14323241 (Version 2)
Quarter: 2018Q1

REPORT INFORMATION
  Report Type: Spontaneous
  Country: JP (occurrence: JP)
  Receive Date: 20171226
  Receipt Date: 20180123
  Transmission Date: 20180509
  Serious: Yes (Other)
  Sender: FDA-Public Use
  Company Number: JP-ABBVIE-17P-087-2204109-00

PATIENT
  Age: 64 Year
  Sex: Male

DRUGS (2)
  1. LUPRON DEPOT [Suspect]
     Active Substance: LEUPROLIDE ACETATE
     Dosage: 11.25 MG, Q3MONTHS
     Route: 058
     Dates: start: 20171211
  2. LUPRON DEPOT [Suspect]
     Active Substance: LEUPROLIDE ACETATE
     Indication: PROSTATE CANCER
     Dosage: 11.25 MG, Q3MONTHS
     Route: 058
     Dates: start: 201703, end: 201703

REACTIONS (2)
  - Acute coronary syndrome [Unknown]
  - Hot flush [Unknown]

NARRATIVE: CASE EVENT DATE: 201703
